FAERS Safety Report 24613258 (Version 1)
Quarter: 2024Q4

REPORT INFORMATION
  Report Type: Report from Study
  Country: CA (occurrence: CA)
  Receive Date: 20241113
  Receipt Date: 20241113
  Transmission Date: 20250114
  Serious: Yes (Hospitalization)
  Sender: SAMSUNG BIOEPIS
  Company Number: CA-SAMSUNG BIOEPIS-SB-2024-32689

PATIENT
  Age: 57 Year
  Sex: Female

DRUGS (1)
  1. HADLIMA [Suspect]
     Active Substance: ADALIMUMAB-BWWD
     Indication: Crohn^s disease
     Dosage: 40MG/0.8ML;
     Route: 058
     Dates: start: 20241026, end: 20241026

REACTIONS (10)
  - Injection related reaction [Unknown]
  - Nausea [Recovering/Resolving]
  - Dizziness [Recovering/Resolving]
  - Tremor [Recovered/Resolved]
  - Headache [Recovering/Resolving]
  - Decreased appetite [Unknown]
  - Illness [Unknown]
  - Panic attack [Unknown]
  - Malaise [Unknown]
  - Hyperacusis [Unknown]

NARRATIVE: CASE EVENT DATE: 20241026
